FAERS Safety Report 4944681-2 (Version None)
Quarter: 2006Q1

REPORT INFORMATION
  Report Type: 
  Country: None (occurrence: None)
  Receive Date: 20060113
  Receipt Date: 20050913
  Transmission Date: 20060701
  Serious: Yes (Hospitalization, Other)
  Sender: FDA-Public Use
  Company Number: HQWYE973810SEP04

PATIENT
  Age: 61 Year
  Sex: Female
  Weight: 74 kg

DRUGS (8)
  1. PREMPRO [Suspect]
     Indication: MENOPAUSE
     Dosage: 0.625MG/2.5 MG, ORAL
     Route: 048
     Dates: start: 19970901
  2. PREMARIN [Suspect]
     Indication: MENOPAUSAL SYMPTOMS PROPHYLAXIS
     Dosage: ORAL
     Route: 048
     Dates: start: 19941201
  3. LEVOTHROID [Concomitant]
  4. RISPERDAL [Concomitant]
  5. NEURONTIN [Concomitant]
  6. LIBRIUM [Concomitant]
  7. LIPITOR [Concomitant]
  8. TRICOR [Concomitant]

REACTIONS (1)
  - BREAST CANCER [None]
